FAERS Safety Report 7000228-0 (Version None)
Quarter: 2010Q3

REPORT INFORMATION
  Report Type: 
  Country: None (occurrence: None)
  Receive Date: 20100920
  Receipt Date: 20100129
  Transmission Date: 20110219
  Serious: Yes (Other)
  Sender: FDA-Public Use
  Company Number: US-ASTRAZENECA-2007UW05865

PATIENT
  Age: 12725 Day
  Sex: Female
  Weight: 93 kg

DRUGS (17)
  1. SEROQUEL [Suspect]
     Indication: DEPRESSION
     Route: 048
     Dates: start: 19980101
  2. SEROQUEL [Suspect]
     Indication: BIPOLAR DISORDER
     Route: 048
     Dates: start: 19980101
  3. SEROQUEL [Suspect]
     Route: 048
     Dates: start: 19990101, end: 20060101
  4. SEROQUEL [Suspect]
     Route: 048
     Dates: start: 19990101, end: 20060101
  5. SEROQUEL [Suspect]
     Route: 048
     Dates: start: 20050329
  6. SEROQUEL [Suspect]
     Route: 048
     Dates: start: 20050329
  7. BIAXIN [Concomitant]
  8. PROTONIX [Concomitant]
  9. GLUCOTROL [Concomitant]
  10. LIPITOR [Concomitant]
  11. EFFEXOR [Concomitant]
  12. PHENERGAN [Concomitant]
  13. PREMARIN [Concomitant]
  14. LISINOPRIL [Concomitant]
  15. ALBUTEROL [Concomitant]
  16. FLEXERIL [Concomitant]
  17. RISPERDAL [Concomitant]
     Indication: INSOMNIA
     Dates: start: 20090101

REACTIONS (12)
  - BLOOD CHOLESTEROL INCREASED [None]
  - BRONCHITIS [None]
  - DIABETES MELLITUS [None]
  - DYSPEPSIA [None]
  - GASTRIC DISORDER [None]
  - HYPERCHOLESTEROLAEMIA [None]
  - IRRITABLE BOWEL SYNDROME [None]
  - KETOACIDOSIS [None]
  - MUSCULOSKELETAL PAIN [None]
  - OEDEMA PERIPHERAL [None]
  - PANCREATITIS [None]
  - TYPE 2 DIABETES MELLITUS [None]
